FAERS Safety Report 8029693-7 (Version None)
Quarter: 2012Q1

REPORT INFORMATION
  Report Type: 
  Country: None (occurrence: None)
  Receive Date: 20120109
  Receipt Date: 20120104
  Transmission Date: 20120608
  Serious: Yes (Hospitalization, Other)
  Sender: FDA-Public Use
  Company Number: ES-PFIZER INC-2011316772

PATIENT
  Age: 59 Year
  Sex: Female

DRUGS (3)
  1. NEOBRUFEN [Suspect]
     Indication: URINARY TRACT INFECTION
     Dosage: UNK
     Dates: start: 20111201, end: 20111201
  2. SOMAVERT [Suspect]
     Dosage: 3 DF, WEEKLY
     Dates: start: 20110601
  3. INSULIN [Concomitant]
     Indication: DIABETES MELLITUS

REACTIONS (3)
  - IMMUNODEFICIENCY [None]
  - URINARY TRACT INFECTION [None]
  - HEPATITIS [None]
